FAERS Safety Report 9679265 (Version 2)
Quarter: 2013Q4

REPORT INFORMATION
  Report Type: Spontaneous
  Country: GR (occurrence: GR)
  Receive Date: 20131109
  Receipt Date: 20131212
  Transmission Date: 20140711
  Serious: Yes (Other)
  Sender: FDA-Public Use
  Company Number: GR-JNJFOC-20131100021

PATIENT
  Sex: Female

DRUGS (4)
  1. REGAINE 5% EXTRA STRENGTH TOPICAL SOLUTION [Suspect]
     Route: 061
  2. REGAINE 5% EXTRA STRENGTH TOPICAL SOLUTION [Suspect]
     Indication: ALOPECIA
     Route: 061
  3. REGAINE 2 % [Concomitant]
     Indication: ALOPECIA
     Route: 065
  4. VITAMIN [Concomitant]
     Indication: PRODUCT USED FOR UNKNOWN INDICATION
     Route: 048

REACTIONS (5)
  - Xerophthalmia [Unknown]
  - Iris neovascularisation [Unknown]
  - Drug prescribing error [Unknown]
  - Pruritus [Unknown]
  - Headache [Unknown]
